FAERS Safety Report 10678322 (Version 1)
Quarter: 2014Q4

REPORT INFORMATION
  Report Type: Spontaneous
  Country: US (occurrence: None)
  Receive Date: 20141224
  Receipt Date: 20141224
  Transmission Date: 20150529
  Serious: Yes (Other)
  Sender: FDA-Public Use
  Company Number: None

PATIENT
  Sex: Female
  Weight: 81.65 kg

DRUGS (1)
  1. GENERIC NORCO QUALITEST [Suspect]
     Active Substance: ACETAMINOPHEN\HYDROCODONE BITARTRATE
     Dosage: TWICE 12/14, PHOTO AVALUABLE
     Dates: start: 201412

REACTIONS (3)
  - Malaise [None]
  - Product substitution issue [None]
  - Reaction to drug excipients [None]

NARRATIVE: CASE EVENT DATE: 20141221
